FAERS Safety Report 20246387 (Version 1)
Quarter: 2021Q4

REPORT INFORMATION
  Report Type: Spontaneous
  Country: US (occurrence: None)
  Receive Date: 20211228
  Receipt Date: 20211228
  Transmission Date: 20220303
  Serious: Yes (Hospitalization)
  Sender: FDA-Public Use
  Company Number: None

PATIENT
  Age: 17 Year
  Sex: Male
  Weight: 88.65 kg

DRUGS (5)
  1. SAPROPTERIN [Suspect]
     Active Substance: SAPROPTERIN
     Indication: Hyperphenylalaninaemia
     Dosage: FREQUENCY : DAILY;?
     Route: 048
     Dates: start: 20211101, end: 20211213
  2. ZYPREXA [Concomitant]
     Active Substance: OLANZAPINE
  3. RISPERIDONE [Concomitant]
     Active Substance: RISPERIDONE
  4. BENADRYL [Concomitant]
     Active Substance: DIPHENHYDRAMINE HYDROCHLORIDE
  5. HYDROXYZINE [Concomitant]
     Active Substance: HYDROXYZINE HYDROCHLORIDE

REACTIONS (3)
  - Screaming [None]
  - Impulsive behaviour [None]
  - Micturition urgency [None]

NARRATIVE: CASE EVENT DATE: 20211209
